FAERS Safety Report 4322975-1 (Version None)
Quarter: 2004Q1

REPORT INFORMATION
  Report Type: 
  Country: None (occurrence: None)
  Receive Date: 20040322
  Receipt Date: 20040315
  Transmission Date: 20041129
  Serious: Yes (Other)
  Sender: FDA-Public Use
  Company Number: 200314773BCC

PATIENT
  Age: 29 Year
  Sex: Female
  Weight: 81.6475 kg

DRUGS (4)
  1. ALEVE (CAPLET) [Suspect]
     Indication: PYREXIA
     Dosage: 660 MG, IRR, ORAL
     Route: 048
  2. METHADONE [Concomitant]
  3. OXYCONTIN [Concomitant]
  4. ERYTHROMYCIN [Concomitant]

REACTIONS (3)
  - BODY TEMPERATURE INCREASED [None]
  - DELIRIUM [None]
  - DRY MOUTH [None]
